FAERS Safety Report 13458549 (Version 1)
Quarter: 2017Q2

REPORT INFORMATION
  Report Type: Report from Study
  Country: US (occurrence: US)
  Receive Date: 20170419
  Receipt Date: 20170419
  Transmission Date: 20170830
  Serious: No
  Sender: FDA-Public Use
  Company Number: PHEH2017US011317

PATIENT
  Age: 52 Year

DRUGS (2)
  1. TASIGNA [Suspect]
     Active Substance: NILOTINIB
     Indication: PRODUCT USED FOR UNKNOWN INDICATION
     Dosage: 150 MG, BID
     Route: 048
     Dates: start: 20170403
  2. TASIGNA [Suspect]
     Active Substance: NILOTINIB
     Dosage: 4 DF,QD (TWO 150 MG CAPSULES IN MORNING AND TWO 150 MG CAPSULES IN THE EVENING ON AN EMPTY STOMACH)
     Route: 048

REACTIONS (4)
  - Movement disorder [Unknown]
  - Muscle spasms [Recovered/Resolved]
  - Myalgia [Recovered/Resolved]
  - Pain [Recovered/Resolved]

NARRATIVE: CASE EVENT DATE: 20170410
